FAERS Safety Report 4925486-5 (Version None)
Quarter: 2006Q1

REPORT INFORMATION
  Report Type: 
  Country: None (occurrence: None)
  Receive Date: 20060228
  Receipt Date: 20050301
  Transmission Date: 20060701
  Serious: No
  Sender: FDA-Public Use
  Company Number: US-GLAXOSMITHKLINE-A0547786A

PATIENT
  Age: 70 Year
  Sex: Female

DRUGS (6)
  1. LAMICTAL [Suspect]
     Indication: BIPOLAR DISORDER
     Dosage: 100MG PER DAY
     Route: 048
  2. QUININE [Concomitant]
  3. LIPITOR [Concomitant]
  4. TRIAMTERENE [Concomitant]
  5. LEXAPRO [Concomitant]
  6. ESTRADIOL [Concomitant]

REACTIONS (1)
  - RASH [None]
